FAERS Safety Report 4628253-5 (Version None)
Quarter: 2005Q2

REPORT INFORMATION
  Report Type: 
  Country: None (occurrence: None)
  Receive Date: 20050406
  Receipt Date: 20050328
  Transmission Date: 20051028
  Serious: Yes (Death)
  Sender: FDA-Public Use
  Company Number: JP-JNJFOC-20050306976

PATIENT
  Sex: Male

DRUGS (2)
  1. RISPERDAL [Suspect]
     Indication: SCHIZOPHRENIA
     Route: 049
     Dates: start: 20040916, end: 20041022
  2. BROTIZOLAM [Concomitant]
     Indication: INSOMNIA

REACTIONS (2)
  - SHOCK [None]
  - SLEEP DISORDER [None]
